FAERS Safety Report 25830292 (Version 1)
Quarter: 2025Q3

REPORT INFORMATION
  Report Type: Spontaneous
  Country: US (occurrence: US)
  Receive Date: 20250922
  Receipt Date: 20250922
  Transmission Date: 20251020
  Serious: No
  Sender: IPSEN BIOPHARMACEUTICALS, INC.
  Company Number: US-IPSEN Group, Research and Development-2025-23043

PATIENT
  Age: 69 Year
  Sex: Female
  Weight: 51 kg

DRUGS (7)
  1. TAZVERIK [Suspect]
     Active Substance: TAZEMETOSTAT HYDROBROMIDE
     Indication: Follicular lymphoma
     Dosage: TWICE DAILY.
     Route: 048
     Dates: start: 20240628
  2. ROSUVASTATIN [Concomitant]
     Active Substance: ROSUVASTATIN
  3. LUTEIN [Concomitant]
     Active Substance: LUTEIN
  4. VALACYCLOVIR [Concomitant]
     Active Substance: VALACYCLOVIR HYDROCHLORIDE
  5. Eylea Intravitreal [Concomitant]
  6. VITAMINS [Concomitant]
     Active Substance: VITAMINS
  7. NIFEDIPINE [Concomitant]
     Active Substance: NIFEDIPINE

REACTIONS (1)
  - Lung opacity [Not Recovered/Not Resolved]
